FAERS Safety Report 5635446-7 (Version None)
Quarter: 2008Q1

REPORT INFORMATION
  Report Type: 
  Country: None (occurrence: None)
  Receive Date: 20080222
  Receipt Date: 20080211
  Transmission Date: 20080703
  Serious: Yes (Other)
  Sender: FDA-Public Use
  Company Number: US-PFIZER INC-2008014019

PATIENT
  Sex: Female

DRUGS (8)
  1. LYRICA [Suspect]
     Indication: BACK PAIN
  2. LYRICA [Suspect]
     Indication: PAIN IN EXTREMITY
  3. LYRICA [Suspect]
     Indication: FIBROMYALGIA
  4. ALL OTHER THERAPEUTIC PRODUCTS [Concomitant]
     Indication: MYALGIA
  5. VALSARTAN [Concomitant]
  6. ACTOS [Concomitant]
  7. BIOFLAVONOIDS [Concomitant]
  8. HYDROCHLOROTHIAZIDE [Concomitant]

REACTIONS (1)
  - SKIN BURNING SENSATION [None]
